FAERS Safety Report 9729626 (Version 1)
Quarter: 2013Q4

REPORT INFORMATION
  Report Type: Report from Study
  Country: ES (occurrence: ES)
  Receive Date: 20131204
  Receipt Date: 20131204
  Transmission Date: 20140711
  Serious: Yes (Hospitalization)
  Sender: FDA-Public Use
  Company Number: ES-MERCK-1312ESP001140

PATIENT
  Age: 47 Year
  Sex: Male

DRUGS (1)
  1. INVANZ [Suspect]
     Indication: CELLULITIS
     Dosage: 1 GR, ONCE DAILY
     Route: 042
     Dates: start: 20120706, end: 20120711

REACTIONS (1)
  - Hepatitis acute [Recovered/Resolved]
